FAERS Safety Report 6425093-1 (Version None)
Quarter: 2009Q4

REPORT INFORMATION
  Report Type: 
  Country: None (occurrence: None)
  Receive Date: 20091103
  Receipt Date: 20091023
  Transmission Date: 20100525
  Serious: Yes (Other)
  Sender: FDA-Public Use
  Company Number: US-PFIZER INC-2009288339

PATIENT
  Sex: Female
  Weight: 72.562 kg

DRUGS (2)
  1. CHANTIX [Suspect]
     Indication: SMOKING CESSATION THERAPY
     Dosage: UNK
     Dates: start: 20090901, end: 20091021
  2. LIPITOR [Concomitant]
     Dosage: UNK

REACTIONS (5)
  - CATARACT OPERATION [None]
  - ERYTHEMA [None]
  - RASH [None]
  - SKIN EXFOLIATION [None]
  - SWELLING FACE [None]
